FAERS Safety Report 5857452-X (Version None)
Quarter: 2008Q3

REPORT INFORMATION
  Report Type: 
  Country: None (occurrence: None)
  Receive Date: 20080822
  Receipt Date: 20080807
  Transmission Date: 20090109
  Serious: Yes (Death)
  Sender: FDA-Public Use
  Company Number: 08-211

PATIENT
  Age: 51 Year
  Sex: Male

DRUGS (1)
  1. FAZACLO ODT [Suspect]
     Dosage: 900 MG DAILY PO
     Route: 048
     Dates: start: 20080708, end: 20080729

REACTIONS (2)
  - HAEMORRHAGE [None]
  - MYOCARDIAL INFARCTION [None]
